FAERS Safety Report 7725401-5 (Version None)
Quarter: 2011Q3

REPORT INFORMATION
  Report Type: 
  Country: None (occurrence: None)
  Receive Date: 20110902
  Receipt Date: 20110830
  Transmission Date: 20111222
  Serious: Yes (Other)
  Sender: FDA-Public Use
  Company Number: US-PFIZER INC-2011203308

PATIENT
  Sex: Female
  Weight: 56.7 kg

DRUGS (2)
  1. LISINOPRIL AND HYDROCHLOROTHIAZIDE [Concomitant]
     Indication: HYPERTENSION
     Dosage: 10/12.5 MG, DAILY
     Dates: start: 19910101
  2. PREMARIN [Suspect]
     Indication: VULVOVAGINAL DRYNESS
     Dosage: UNK, 2X/DAY
     Dates: start: 20110823, end: 20110825

REACTIONS (2)
  - DRUG INEFFECTIVE [None]
  - VAGINAL HAEMORRHAGE [None]
